FAERS Safety Report 21028472 (Version 1)
Quarter: 2022Q2

REPORT INFORMATION
  Report Type: Spontaneous
  Country: US (occurrence: None)
  Receive Date: 20220630
  Receipt Date: 20220630
  Transmission Date: 20220721
  Serious: No
  Sender: FDA-Public Use
  Company Number: None

PATIENT
  Age: 46 Year
  Sex: Male
  Weight: 86.18 kg

DRUGS (2)
  1. HERBALS\MITRAGYNINE [Suspect]
     Active Substance: HERBALS\MITRAGYNINE
     Indication: Back disorder
     Route: 048
     Dates: start: 202205, end: 202206
  2. HERBALS\MITRAGYNINE [Suspect]
     Active Substance: HERBALS\MITRAGYNINE
     Indication: Anxiety

REACTIONS (5)
  - Road traffic accident [None]
  - Drug dependence [None]
  - Euphoric mood [None]
  - Adverse drug reaction [None]
  - Feeling abnormal [None]

NARRATIVE: CASE EVENT DATE: 20220602
